FAERS Safety Report 5092332-1 (Version None)
Quarter: 2006Q3

REPORT INFORMATION
  Report Type: 
  Country: None (occurrence: None)
  Receive Date: 20060825
  Receipt Date: 20060808
  Transmission Date: 20061208
  Serious: Yes (Hospitalization, Disabling, Other)
  Sender: FDA-Public Use
  Company Number: US200608001817

PATIENT
  Age: 93 Year
  Sex: Female

DRUGS (1)
  1. EVISTA [Suspect]
     Dosage: ORAL
     Route: 048
     Dates: start: 20000104, end: 20010910

REACTIONS (4)
  - ABASIA [None]
  - BACK PAIN [None]
  - FRACTURE [None]
  - PAIN IN EXTREMITY [None]
